FAERS Safety Report 24551872 (Version 1)
Quarter: 2024Q4

REPORT INFORMATION
  Report Type: Report from Study
  Country: ES (occurrence: ES)
  Receive Date: 20241026
  Receipt Date: 20241026
  Transmission Date: 20250115
  Serious: Yes (Death)
  Sender: ABBVIE
  Company Number: ES-ABBVIE-5977547

PATIENT
  Age: 76 Year
  Sex: Female

DRUGS (2)
  1. CARBIDOPA\LEVODOPA [Suspect]
     Active Substance: CARBIDOPA\LEVODOPA
     Indication: Parkinson^s disease
     Route: 050
     Dates: start: 20190627
  2. CARBIDOPA\LEVODOPA [Suspect]
     Active Substance: CARBIDOPA\LEVODOPA

REACTIONS (9)
  - Fluid retention [Fatal]
  - Acute kidney injury [Fatal]
  - Pyrexia [Fatal]
  - White blood cell disorder [Unknown]
  - Urinary tract infection [Fatal]
  - Impaired quality of life [Unknown]
  - Loss of personal independence in daily activities [Unknown]
  - Unevaluable event [Fatal]
  - Somnolence [Fatal]

NARRATIVE: CASE EVENT DATE: 20241001
